FAERS Safety Report 6557736-6 (Version None)
Quarter: 2010Q1

REPORT INFORMATION
  Report Type: 
  Country: None (occurrence: None)
  Receive Date: 20100126
  Receipt Date: 20090812
  Transmission Date: 20100710
  Serious: Yes (Hospitalization, Other)
  Sender: FDA-Public Use
  Company Number: LMI-2009-00192 (1)

PATIENT
  Age: 58 Year
  Sex: Male
  Weight: 115 kg

DRUGS (17)
  1. DEFINITY [Suspect]
     Indication: LIVER TRANSPLANT
     Dosage: SEE IMAGE
     Route: 042
     Dates: start: 20090729, end: 20090729
  2. DEFINITY [Suspect]
     Indication: STRESS ECHOCARDIOGRAM
     Dosage: SEE IMAGE
     Route: 042
     Dates: start: 20090729, end: 20090729
  3. DEFINITY [Suspect]
     Indication: LIVER TRANSPLANT
     Dosage: SEE IMAGE
     Route: 042
     Dates: start: 20090729, end: 20090729
  4. DEFINITY [Suspect]
     Indication: STRESS ECHOCARDIOGRAM
     Dosage: SEE IMAGE
     Route: 042
     Dates: start: 20090729, end: 20090729
  5. DOBUTAMINE (DOBUTAMNE) [Concomitant]
  6. ALDACTONE [Concomitant]
  7. ASPIRIN [Concomitant]
  8. ALLOPURINOL [Concomitant]
  9. MULTIVITAMIN [Concomitant]
  10. IRON (IRON) [Concomitant]
  11. FLUOXETINE [Concomitant]
  12. METOLAZONE [Concomitant]
  13. VICODIN [Concomitant]
  14. WARFARIN SODIUM [Concomitant]
  15. SYSTANE EYE DROPS (PROPYLENE GLYCOL, MACROGOL) [Concomitant]
  16. DEMADEX [Concomitant]
  17. XANAX [Concomitant]

REACTIONS (7)
  - ASTHENIA [None]
  - FLUSHING [None]
  - HYPERSENSITIVITY [None]
  - HYPOTENSION [None]
  - NAUSEA [None]
  - PRURITUS [None]
  - RASH GENERALISED [None]
